FAERS Safety Report 20507090 (Version 1)
Quarter: 2022Q1

REPORT INFORMATION
  Report Type: Spontaneous
  Country: US (occurrence: None)
  Receive Date: 20220222
  Receipt Date: 20220222
  Transmission Date: 20220423
  Serious: Yes (Disabling)
  Sender: FDA-Public Use
  Company Number: None

PATIENT
  Age: 67 Year
  Sex: Female
  Weight: 58.05 kg

DRUGS (7)
  1. METHYLPREDNISOLONE [Suspect]
     Active Substance: METHYLPREDNISOLONE
     Indication: Erythema
     Dosage: OTHER QUANTITY : 1 TABLET(S);?OTHER FREQUENCY : AS DIRECTED;?
     Route: 048
     Dates: start: 20220204, end: 20220209
  2. METHYLPREDNISOLONE [Suspect]
     Active Substance: METHYLPREDNISOLONE
     Indication: Inflammation
  3. ALBUTEROL [Concomitant]
     Active Substance: ALBUTEROL
  4. FLUTICASONE [Concomitant]
     Active Substance: FLUTICASONE
  5. ERYTHROMYCIN [Concomitant]
     Active Substance: ERYTHROMYCIN
  6. ROSUVASTATIN [Concomitant]
     Active Substance: ROSUVASTATIN
  7. ALIVERT [Concomitant]

REACTIONS (15)
  - Dyspnoea [None]
  - Visual acuity reduced [None]
  - Insomnia [None]
  - Dizziness [None]
  - Ear pain [None]
  - Agitation [None]
  - Ill-defined disorder [None]
  - Hyperhidrosis [None]
  - Headache [None]
  - Cough [None]
  - Oropharyngeal pain [None]
  - Diarrhoea [None]
  - Melaena [None]
  - Swelling face [None]
  - Erythema [None]

NARRATIVE: CASE EVENT DATE: 20220204
